FAERS Safety Report 18700701 (Version 2)
Quarter: 2021Q1

REPORT INFORMATION
  Report Type: Report from Study
  Country: US (occurrence: US)
  Receive Date: 20210105
  Receipt Date: 20210211
  Transmission Date: 20210419
  Serious: Yes (Other)
  Sender: FDA-Public Use
  Company Number: US-ASTRAZENECA-2020SF75479

PATIENT
  Age: 22257 Day
  Sex: Female
  Weight: 68.3 kg

DRUGS (13)
  1. CLARITIN [Concomitant]
     Active Substance: LORATADINE
  2. LAMICTAL [Concomitant]
     Active Substance: LAMOTRIGINE
  3. LISINOPRIL. [Concomitant]
     Active Substance: LISINOPRIL
     Dosage: 5.0MG UNKNOWN
  4. TAGRISSO [Suspect]
     Active Substance: OSIMERTINIB
     Indication: LUNG CARCINOMA CELL TYPE UNSPECIFIED STAGE 0
     Route: 048
     Dates: start: 20200515
  5. XANAX [Concomitant]
     Active Substance: ALPRAZOLAM
  6. VICODIN [Concomitant]
     Active Substance: ACETAMINOPHEN\HYDROCODONE BITARTRATE
  7. ASPIRIN. [Concomitant]
     Active Substance: ASPIRIN
  8. LEVOTHYROXINE. [Concomitant]
     Active Substance: LEVOTHYROXINE
  9. VITAMIN E [Concomitant]
     Active Substance: .ALPHA.-TOCOPHEROL
  10. EFFEXOR [Concomitant]
     Active Substance: VENLAFAXINE HYDROCHLORIDE
  11. METOPROLOL. [Suspect]
     Active Substance: METOPROLOL
     Dosage: 50.0MG UNKNOWN
     Route: 065
  12. TRAMADOL. [Concomitant]
     Active Substance: TRAMADOL
  13. PEPCID [Concomitant]
     Active Substance: FAMOTIDINE

REACTIONS (4)
  - Ejection fraction decreased [Unknown]
  - Nail disorder [Not Recovered/Not Resolved]
  - Myocardial infarction [Not Recovered/Not Resolved]
  - Left ventricular dysfunction [Not Recovered/Not Resolved]

NARRATIVE: CASE EVENT DATE: 20201029
